FAERS Safety Report 5580094-0 (Version None)
Quarter: 2007Q4

REPORT INFORMATION
  Report Type: 
  Country: None (occurrence: None)
  Receive Date: 20071227
  Receipt Date: 20071227
  Transmission Date: 20080405
  Serious: Yes (Hospitalization)
  Sender: FDA-Public Use
  Company Number: None

PATIENT
  Sex: Female
  Weight: 67.9 kg

DRUGS (3)
  1. FLUOROURACIL [Suspect]
     Dosage: 20796 MG
  2. CISPLATIN [Suspect]
     Dosage: 115 MG
  3. ELLENCE [Suspect]
     Dosage: 95.5 MG

REACTIONS (7)
  - ASTHENIA [None]
  - BODY TEMPERATURE INCREASED [None]
  - FALL [None]
  - HYDRONEPHROSIS [None]
  - IMPAIRED GASTRIC EMPTYING [None]
  - MUSCULAR WEAKNESS [None]
  - PERONEAL NERVE PALSY [None]
